FAERS Safety Report 20911143 (Version 2)
Quarter: 2022Q2

REPORT INFORMATION
  Report Type: Report from Study
  Country: US (occurrence: None)
  Receive Date: 20220603
  Receipt Date: 20220616
  Transmission Date: 20220720
  Serious: Yes (Hospitalization)
  Sender: FDA-Public Use
  Company Number: US-ROCHE-3103495

PATIENT
  Age: 70 Year
  Sex: Male
  Weight: 70.3 kg

DRUGS (16)
  1. ABEMACICLIB [Suspect]
     Active Substance: ABEMACICLIB
     Indication: Prostate cancer
     Dosage: ON 31/JAN/2022, HE RECEIVED LAST DOSE OF ABEMACICLIB, AM DOSE
     Route: 048
     Dates: start: 20220121, end: 20220131
  2. ATEZOLIZUMAB [Suspect]
     Active Substance: ATEZOLIZUMAB
     Indication: Prostate cancer
     Route: 041
     Dates: start: 20220121, end: 20220121
  3. VANCOMYCIN [Concomitant]
     Active Substance: VANCOMYCIN
  4. CEFEPIME [Concomitant]
     Active Substance: CEFEPIME HYDROCHLORIDE
  5. ACETAMINOPHEN [Concomitant]
     Active Substance: ACETAMINOPHEN
  6. METHYLPREDNISOLONE [Concomitant]
     Active Substance: METHYLPREDNISOLONE
  7. METHYLPREDNISOLONE [Concomitant]
     Active Substance: METHYLPREDNISOLONE
  8. PREDNISONE [Concomitant]
     Active Substance: PREDNISONE
  9. PREDNISONE [Concomitant]
     Active Substance: PREDNISONE
  10. TESSALON [Concomitant]
     Active Substance: BENZONATATE
     Route: 048
  11. WELLBUTRIN SR [Concomitant]
     Active Substance: BUPROPION HYDROCHLORIDE
     Route: 048
  12. CALTRATE 600+D [Concomitant]
     Route: 048
  13. KLONOPIN [Concomitant]
     Active Substance: CLONAZEPAM
     Dosage: 0.5 MG
     Route: 048
  14. ADVIL [Concomitant]
     Active Substance: IBUPROFEN
  15. LUPRON DEPOT [Concomitant]
     Active Substance: LEUPROLIDE ACETATE
  16. ZOCOR [Concomitant]
     Active Substance: SIMVASTATIN
     Route: 048

REACTIONS (2)
  - Hypotension [Recovered/Resolved]
  - Pneumonitis [Not Recovered/Not Resolved]

NARRATIVE: CASE EVENT DATE: 20220131
